FAERS Safety Report 20705288 (Version 3)
Quarter: 2022Q2

REPORT INFORMATION
  Report Type: Report from Study
  Country: CO (occurrence: CO)
  Receive Date: 20220413
  Receipt Date: 20220512
  Transmission Date: 20220721
  Serious: Yes (Death, Other)
  Sender: FDA-Public Use
  Company Number: CO-NOVARTISPH-NVSC2022CO083798

PATIENT
  Age: 75 Year
  Sex: Female

DRUGS (1)
  1. KISQALI [Suspect]
     Active Substance: RIBOCICLIB
     Indication: Hormone receptor positive HER2 negative breast cancer
     Dosage: 600 MG, QD
     Route: 048
     Dates: start: 20220406

REACTIONS (17)
  - Death [Fatal]
  - Neoplasm [Unknown]
  - Discouragement [Unknown]
  - Fall [Unknown]
  - Decreased appetite [Unknown]
  - Cough [Unknown]
  - Dysstasia [Unknown]
  - Fatigue [Unknown]
  - Tremor [Unknown]
  - Illness [Unknown]
  - Inflammation [Unknown]
  - Headache [Unknown]
  - Asthenia [Unknown]
  - Vomiting [Unknown]
  - Depression [Unknown]
  - Malaise [Unknown]
  - Drug ineffective [Unknown]

NARRATIVE: CASE EVENT DATE: 20220427
